FAERS Safety Report 22626548 (Version 1)
Quarter: 2023Q2

REPORT INFORMATION
  Report Type: Spontaneous
  Country: IT (occurrence: IT)
  Receive Date: 20230621
  Receipt Date: 20230621
  Transmission Date: 20230722
  Serious: Yes (Hospitalization)
  Sender: FDA-Public Use
  Company Number: None

PATIENT
  Age: 9 Year
  Sex: Male
  Weight: 19 kg

DRUGS (11)
  1. CLOBAZAM [Suspect]
     Active Substance: CLOBAZAM
     Indication: Product used for unknown indication
     Dosage: CLOBAZAM 2.5 MG + 5 MG /DAY
     Route: 048
  2. OMEPRAZOLE [Suspect]
     Active Substance: OMEPRAZOLE
     Indication: Product used for unknown indication
     Dosage: 20 MG, QD
     Route: 051
  3. AMIODARONE HYDROCHLORIDE [Suspect]
     Active Substance: AMIODARONE HYDROCHLORIDE
     Indication: Product used for unknown indication
     Dosage: 100 MG, QD
     Route: 048
  4. FUROSEMIDE [Suspect]
     Active Substance: FUROSEMIDE
     Indication: Product used for unknown indication
     Dosage: 5 MG AS NEEDED (ADMINISTERED 10 MG ON 01/06, 5 MG ON 02-03-04-05-06/06)
     Route: 051
  5. ASPIRIN DL-LYSINE [Suspect]
     Active Substance: ASPIRIN DL-LYSINE
     Indication: Product used for unknown indication
     Dosage: 75 MG, QD
     Route: 048
  6. VALPROIC ACID [Suspect]
     Active Substance: VALPROIC ACID
     Indication: Product used for unknown indication
     Dosage: 250 MG X 2 TIMES/DAY
     Route: 048
  7. TOPIRAMATE [Suspect]
     Active Substance: TOPIRAMATE
     Indication: Product used for unknown indication
     Dosage: 12.5 MG X 2 TIMES/DAY
     Route: 048
  8. CALCIFEDIOL [Suspect]
     Active Substance: CALCIFEDIOL
     Indication: Product used for unknown indication
     Dosage: DIHYDROGYL 3 DROPS/DAY
     Route: 048
  9. DAPTOMYCIN [Suspect]
     Active Substance: DAPTOMYCIN
     Indication: Product used for unknown indication
     Dosage: 140 MG, QD
     Route: 051
  10. ETHOSUXIMIDE [Suspect]
     Active Substance: ETHOSUXIMIDE
     Indication: Product used for unknown indication
     Dosage: 250 MG + 300 MG (ADDITIONAL STOPOVER PLANNED)
     Route: 048
  11. MEROPENEM [Suspect]
     Active Substance: MEROPENEM
     Indication: Product used for unknown indication
     Dosage: 600 MG X 3 TIMES/DAY (SCHEDULED UNTIL 07/06)
     Route: 051

REACTIONS (1)
  - Oliguria [Not Recovered/Not Resolved]

NARRATIVE: CASE EVENT DATE: 20230528
